FAERS Safety Report 25049921 (Version 1)
Quarter: 2025Q1

REPORT INFORMATION
  Report Type: Spontaneous
  Country: US (occurrence: None)
  Receive Date: 20250306
  Receipt Date: 20250306
  Transmission Date: 20250408
  Serious: Yes (Other)
  Sender: FDA-CTU
  Company Number: None

PATIENT
  Age: 44 Year
  Sex: Male
  Weight: 113.4 kg

DRUGS (1)
  1. HIZENTRA [Suspect]
     Active Substance: HUMAN IMMUNOGLOBULIN G
     Indication: Immunodeficiency common variable
     Dosage: 15 G GRAM(S)  ONCE WEEKLY SUBCUTANEOUS
     Route: 058
     Dates: start: 20240123

REACTIONS (5)
  - Infusion related reaction [None]
  - Headache [None]
  - Infusion site erythema [None]
  - Infusion site pruritus [None]
  - Product quality issue [None]

NARRATIVE: CASE EVENT DATE: 20250305
